FAERS Safety Report 14020148 (Version 3)
Quarter: 2017Q4

REPORT INFORMATION
  Report Type: Spontaneous
  Country: US (occurrence: US)
  Receive Date: 20170928
  Receipt Date: 20171019
  Transmission Date: 20180321
  Serious: Yes (Hospitalization)
  Sender: FDA-Public Use
  Company Number: US-JNJFOC-20170926000

PATIENT
  Age: 56 Year
  Sex: Female
  Weight: 99.79 kg

DRUGS (23)
  1. PLAQUENIL [Concomitant]
     Active Substance: HYDROXYCHLOROQUINE SULFATE
     Route: 048
  2. XYLOCAINE [Concomitant]
     Active Substance: LIDOCAINE HYDROCHLORIDE
     Dosage: USE AS DIRECTED 5 MLS IN THE MOUTH OR THROAT
     Route: 048
  3. PROVENTIL [Concomitant]
     Active Substance: ALBUTEROL
     Indication: DYSPNOEA
     Dosage: INHALE 2 PUFFS INTO THE LUNGS
     Route: 055
  4. BENADRYL [Concomitant]
     Active Substance: DIPHENHYDRAMINE HYDROCHLORIDE
     Indication: PRURITUS
     Dosage: TAKE 1-2 EVERY 6-8 HOURS AS NEEDED
     Route: 048
  5. WESTCORT [Concomitant]
     Active Substance: HYDROCORTISONE VALERATE
     Indication: RASH PRURITIC
     Route: 061
  6. ZANAFLEX [Concomitant]
     Active Substance: TIZANIDINE HYDROCHLORIDE
     Dosage: AS NEEDED
     Route: 048
  7. TENORMIN [Concomitant]
     Active Substance: ATENOLOL
     Route: 048
  8. RHINOCORT AQUA [Concomitant]
     Active Substance: BUDESONIDE
     Indication: RHINITIS ALLERGIC
     Dosage: 1 SPRAY BY NASAL ROUTE DAILY AS NEEDED
     Route: 045
  9. ROXICODONE [Concomitant]
     Active Substance: OXYCODONE HYDROCHLORIDE
     Indication: PAIN
     Dosage: AS NEEDED
     Route: 048
  10. ELAVIL [Concomitant]
     Active Substance: AMITRIPTYLINE HYDROCHLORIDE
     Route: 048
  11. CLINDAMYCIN. [Concomitant]
     Active Substance: CLINDAMYCIN
     Route: 048
  12. HYDROCORTISONE. [Concomitant]
     Active Substance: HYDROCORTISONE
     Route: 061
  13. VALIUM [Concomitant]
     Active Substance: DIAZEPAM
     Indication: MUSCLE SPASMS
     Dosage: EVERY 8 (EIGHT) HOURS AS NEEDED
     Route: 048
  14. LOVENOX [Concomitant]
     Active Substance: ENOXAPARIN SODIUM
     Dosage: INJECT 1 ML (100 MG TOTAL) INTO THE SKIN EVERY 12 (TWELVE) HOURS.
     Route: 050
  15. NORCO [Concomitant]
     Active Substance: ACETAMINOPHEN\HYDROCODONE BITARTRATE
     Route: 048
  16. BACTROBAN [Concomitant]
     Active Substance: MUPIROCIN\MUPIROCIN CALCIUM
     Route: 045
  17. FIORICET [Concomitant]
     Active Substance: ACETAMINOPHEN\BUTALBITAL\CAFFEINE
     Indication: HEADACHE
     Dosage: TAKE ONE TABLET TO TWO TABLETS BY MOUTH EVERY 6 (SIX) HOURS AS NEEDED
     Route: 048
  18. HYDROCORTISONE. [Concomitant]
     Active Substance: HYDROCORTISONE
     Indication: RECTAL HAEMORRHAGE
     Route: 054
  19. XARELTO [Suspect]
     Active Substance: RIVAROXABAN
     Indication: PULMONARY EMBOLISM
     Route: 048
     Dates: start: 2012, end: 20170917
  20. ZYRTEC [Concomitant]
     Active Substance: CETIRIZINE HYDROCHLORIDE
     Route: 048
  21. NIZORAL [Concomitant]
     Active Substance: KETOCONAZOLE
     Route: 061
  22. MYCOSTATIN [Concomitant]
     Active Substance: NYSTATIN
     Route: 061
  23. PRAVACHOL [Concomitant]
     Active Substance: PRAVASTATIN SODIUM
     Route: 048

REACTIONS (1)
  - Pulmonary embolism [Recovered/Resolved]

NARRATIVE: CASE EVENT DATE: 20170917
